FAERS Safety Report 5356340-5 (Version None)
Quarter: 2007Q2

REPORT INFORMATION
  Report Type: 
  Country: None (occurrence: None)
  Receive Date: 20070530
  Receipt Date: 20061004
  Transmission Date: 20071010
  Serious: Yes (Hospitalization)
  Sender: FDA-Public Use
  Company Number: US200609004015

PATIENT
  Age: 51 Year
  Sex: Male
  Weight: 81.6 kg

DRUGS (3)
  1. ZYPREXA [Suspect]
     Dosage: 20 MG
     Dates: start: 19960101
  2. ZIPRASIDONE HCL [Concomitant]
  3. DEPAKOTE [Concomitant]

REACTIONS (5)
  - BLOOD CHOLESTEROL ABNORMAL [None]
  - BLOOD TRIGLYCERIDES INCREASED [None]
  - DIABETES MELLITUS [None]
  - HYPERTENSION [None]
  - METABOLIC DISORDER [None]
